FAERS Safety Report 24280097 (Version 2)
Quarter: 2024Q4

REPORT INFORMATION
  Report Type: Report from Study
  Country: DE (occurrence: DE)
  Receive Date: 20240904
  Receipt Date: 20241115
  Transmission Date: 20250114
  Serious: Yes (Death, Other)
  Sender: EMD SERONO INC
  Company Number: DE-Merck Healthcare KGaA-2024046700

PATIENT
  Age: 72 Year
  Sex: Female

DRUGS (3)
  1. REBIF [Suspect]
     Active Substance: INTERFERON BETA-1A
     Indication: Multiple sclerosis
     Dosage: START DATE OF TREATMENT: UNKNOWN (ABOUT 2012)
     Route: 058
     Dates: end: 202203
  2. REBIF [Suspect]
     Active Substance: INTERFERON BETA-1A
  3. REBIF [Suspect]
     Active Substance: INTERFERON BETA-1A

REACTIONS (18)
  - Bladder cancer [Fatal]
  - Gastrointestinal carcinoma [Fatal]
  - Arteriosclerosis coronary artery [Unknown]
  - Ascites [Unknown]
  - Lymphoma [Unknown]
  - Aortic arteriosclerosis [Unknown]
  - Portal hypertensive gastropathy [Unknown]
  - Cardiac failure [Unknown]
  - Gastritis erosive [Unknown]
  - Taste disorder [Unknown]
  - Nail bed disorder [Unknown]
  - Hiatus hernia [Unknown]
  - Cardiomegaly [Unknown]
  - Lung disorder [Unknown]
  - Pleural effusion [Unknown]
  - Gastric hypomotility [Unknown]
  - Chronic gastritis [Unknown]
  - Oesophagitis [Unknown]

NARRATIVE: CASE EVENT DATE: 20220301
